FAERS Safety Report 6897724-3 (Version None)
Quarter: 2010Q3

REPORT INFORMATION
  Report Type: 
  Country: None (occurrence: None)
  Receive Date: 20100802
  Receipt Date: 20070706
  Transmission Date: 20110219
  Serious: No
  Sender: FDA-Public Use
  Company Number: US-PFIZER INC-2007054204

PATIENT
  Sex: Female
  Weight: 90.909 kg

DRUGS (2)
  1. LYRICA [Suspect]
     Indication: DIABETIC NEUROPATHY
     Dates: start: 20070101, end: 20070501
  2. SYNTHROID [Concomitant]

REACTIONS (4)
  - DRUG INEFFECTIVE [None]
  - LETHARGY [None]
  - MYALGIA [None]
  - VISION BLURRED [None]
